FAERS Safety Report 6225477-0 (Version None)
Quarter: 2009Q2

REPORT INFORMATION
  Report Type: 
  Country: None (occurrence: None)
  Receive Date: 20090612
  Receipt Date: 20090420
  Transmission Date: 20091009
  Serious: No
  Sender: FDA-Public Use
  Company Number: US-ABBOTT-09P-163-0569148-00

PATIENT
  Sex: Female
  Weight: 58.566 kg

DRUGS (10)
  1. HUMIRA [Suspect]
     Indication: CROHN'S DISEASE
     Route: 058
     Dates: start: 20081001, end: 20090101
  2. HUMIRA [Suspect]
     Route: 058
     Dates: start: 20090101
  3. BIRTH CONTROL PILLS [Concomitant]
     Indication: CONTRACEPTION
  4. HOYOMAX [Concomitant]
     Indication: MUSCLE SPASMS
  5. HOYOMAX [Concomitant]
     Indication: PROPHYLAXIS
  6. NEXIUM [Concomitant]
     Indication: GASTROOESOPHAGEAL REFLUX DISEASE
  7. ANTINAUSEA PILLS [Concomitant]
     Indication: CROHN'S DISEASE
  8. LORTAB [Concomitant]
     Indication: PAIN
  9. INTAL [Concomitant]
     Indication: ASTHMA
     Route: 055
  10. SINGULAIR [Concomitant]
     Indication: ASTHMA

REACTIONS (4)
  - BLOOD TEST ABNORMAL [None]
  - CROHN'S DISEASE [None]
  - PAIN [None]
  - VOMITING [None]
